FAERS Safety Report 8612063-8 (Version None)
Quarter: 2012Q3

REPORT INFORMATION
  Report Type: 
  Country: None (occurrence: None)
  Receive Date: 20120822
  Receipt Date: 20120820
  Transmission Date: 20120928
  Serious: Yes (Other)
  Sender: FDA-Public Use
  Company Number: CN-PFIZER INC-2012202916

PATIENT
  Age: 65 Year
  Sex: Male

DRUGS (11)
  1. RABEPRAZOLE [Concomitant]
     Dosage: 20 MG, UNK
  2. AMLODIPINE [Concomitant]
     Dosage: 5 MG, UNK
  3. VOGLIBOSE [Concomitant]
     Dosage: 0.2
  4. ISOSORBIDE MONONITRATE [Concomitant]
     Dosage: 20 MG, UNK
  5. WARFARIN [Concomitant]
     Dosage: UNK
     Dates: start: 20120810
  6. LIPITOR [Suspect]
     Dosage: 20 MG, UNK
     Dates: start: 20120725, end: 20120820
  7. ACETYLSALICYLIC ACID [Concomitant]
     Dosage: 0.1 G, UNK
  8. VALSARTAN [Concomitant]
     Dosage: 80 MG, UNK
  9. GLIMEPIRIDE [Concomitant]
     Dosage: 2 MG, UNK
  10. TRIMETAZIDINE [Concomitant]
     Dosage: 20 MG, 3X/DAY
  11. NICERGOLINE [Concomitant]
     Dosage: 5 MG, UNK

REACTIONS (2)
  - BLOOD CREATINE PHOSPHOKINASE INCREASED [None]
  - DRUG INTERACTION [None]
